FAERS Safety Report 7120563-5 (Version None)
Quarter: 2010Q4

REPORT INFORMATION
  Report Type: 
  Country: None (occurrence: None)
  Receive Date: 20101119
  Receipt Date: 20101119
  Transmission Date: 20110411
  Serious: Yes (Hospitalization, Other)
  Sender: FDA-Public Use
  Company Number: None

PATIENT
  Sex: Female
  Weight: 72.5755 kg

DRUGS (2)
  1. ACTONEL [Suspect]
     Indication: OSTEOPENIA
     Dosage: 1 TABLET WEEKLY
     Dates: start: 20040716, end: 20060411
  2. BONIVA [Suspect]
     Indication: OSTEOPENIA
     Dosage: 1 TABLET ONCE
     Dates: start: 20060412, end: 20100911

REACTIONS (4)
  - FOOT FRACTURE [None]
  - ORTHOSIS USER [None]
  - SPINAL FRACTURE [None]
  - THROMBOSIS [None]
